FAERS Safety Report 15537023 (Version 3)
Quarter: 2019Q2

REPORT INFORMATION
  Report Type: Spontaneous
  Country: US (occurrence: US)
  Receive Date: 20181022
  Receipt Date: 20190610
  Transmission Date: 20190711
  Serious: No
  Sender: FDA-Public Use
  Company Number: US-PFIZER INC-2018430848

PATIENT
  Age: 62 Year
  Sex: Male

DRUGS (4)
  1. CLINDAMYCIN HCL [Suspect]
     Active Substance: CLINDAMYCIN HYDROCHLORIDE
     Dosage: UNK
  2. CLEOCIN [Suspect]
     Active Substance: CLINDAMYCIN PHOSPHATE
     Dosage: UNK
  3. CEFDINIR. [Suspect]
     Active Substance: CEFDINIR
     Dosage: UNK
  4. OMNICEF [Suspect]
     Active Substance: CEFDINIR
     Dosage: UNK

REACTIONS (1)
  - Drug hypersensitivity [Unknown]
